FAERS Safety Report 13542586 (Version 1)
Quarter: 2017Q2

REPORT INFORMATION
  Report Type: Spontaneous
  Country: US (occurrence: US)
  Receive Date: 20170512
  Receipt Date: 20170512
  Transmission Date: 20170830
  Serious: No
  Sender: FDA-Public Use
  Company Number: US-ROCHE-712944

PATIENT
  Age: 68 Year
  Sex: Female
  Weight: 40.9 kg

DRUGS (2)
  1. AVASTIN [Suspect]
     Active Substance: BEVACIZUMAB
     Indication: AGE-RELATED MACULAR DEGENERATION
     Route: 050
     Dates: start: 201004, end: 20100622
  2. OMEGA 3 [Concomitant]
     Active Substance: OMEGA-3 FATTY ACIDS
     Dosage: DRUG REPORTED AS OMEGA 3 SUPPLEMENT
     Route: 065

REACTIONS (2)
  - Drug ineffective [Unknown]
  - Eye disorder [Unknown]
